FAERS Safety Report 4297119-5 (Version None)
Quarter: 2004Q1

REPORT INFORMATION
  Report Type: 
  Country: None (occurrence: None)
  Receive Date: 20040213
  Receipt Date: 20040203
  Transmission Date: 20041129
  Serious: Yes (Other)
  Sender: FDA-Public Use
  Company Number: 2003119014

PATIENT
  Age: 51 Year
  Sex: Male
  Weight: 133.8111 kg

DRUGS (3)
  1. VIAGRA [Suspect]
     Indication: SEXUAL DYSFUNCTION
     Dosage: 50 MG (ONCE), ORAL
     Route: 048
     Dates: start: 20010518, end: 20010518
  2. LECITHIN (LECITHIN) [Concomitant]
  3. MULTIVITAMINS (ERGOCALCIFEROL/ASCORBIC ACID, FOLIC ACID, THIAMINE HYDR [Concomitant]

REACTIONS (7)
  - BLOOD CHOLESTEROL INCREASED [None]
  - BLOOD TRIGLYCERIDES INCREASED [None]
  - FRACTURE OF PENIS [None]
  - PAINFUL ERECTION [None]
  - PEYRONIE'S DISEASE [None]
  - SCAR [None]
  - URINARY INCONTINENCE [None]
